FAERS Safety Report 22347713 (Version 1)
Quarter: 2023Q2

REPORT INFORMATION
  Report Type: Spontaneous
  Country: PT (occurrence: PT)
  Receive Date: 20230522
  Receipt Date: 20230522
  Transmission Date: 20230722
  Serious: Yes (Other)
  Sender: FDA-Public Use
  Company Number: PT-002147023-NVSC2023PT014251

PATIENT
  Age: 31 Year
  Sex: Female

DRUGS (11)
  1. LOSARTAN [Suspect]
     Active Substance: LOSARTAN
     Indication: Proteinuria
     Dosage: 200 MILLIGRAM, ONCE A DAY
     Route: 065
  2. LOSARTAN [Suspect]
     Active Substance: LOSARTAN
     Dosage: 150 MILLIGRAM, ONCE A DAY
     Route: 065
  3. MYCOPHENOLATE MOFETIL [Suspect]
     Active Substance: MYCOPHENOLATE MOFETIL
     Indication: IgA nephropathy
     Dosage: 2 GRAM, ONCE A DAY
     Route: 065
  4. RAMIPRIL [Suspect]
     Active Substance: RAMIPRIL
     Indication: Hypertension
     Dosage: 5 MILLIGRAM, ONCE A DAY
     Route: 048
  5. RAMIPRIL [Suspect]
     Active Substance: RAMIPRIL
     Indication: IgA nephropathy
     Dosage: 15 MILLIGRAM, ONCE A DAY
     Route: 048
  6. RAMIPRIL [Suspect]
     Active Substance: RAMIPRIL
     Indication: Proteinuria
  7. RAMIPRIL [Suspect]
     Active Substance: RAMIPRIL
     Indication: Hypercholesterolaemia
  8. SPIRONOLACTONE [Suspect]
     Active Substance: SPIRONOLACTONE
     Indication: Proteinuria
     Dosage: 12.5 MILLIGRAM, ONCE A DAY
     Route: 065
  9. DAPAGLIFLOZIN [Suspect]
     Active Substance: DAPAGLIFLOZIN
     Indication: IgA nephropathy
     Dosage: 10 MILLIGRAM, ONCE A DAY
     Route: 065
  10. PREDNISOLONE [Concomitant]
     Active Substance: PREDNISOLONE
     Indication: Immunosuppressant drug therapy
     Dosage: UNK
     Route: 065
  11. UNSPECIFIED INGREDIENT [Suspect]
     Active Substance: UNSPECIFIED INGREDIENT
     Indication: Hypercholesterolaemia
     Dosage: UNK
     Route: 065

REACTIONS (6)
  - Cough [Unknown]
  - Blood pressure abnormal [Unknown]
  - Drug intolerance [Unknown]
  - Proteinuria [Unknown]
  - Respiratory tract infection [Unknown]
  - Therapy partial responder [Unknown]
